FAERS Safety Report 9284116 (Version 1)
Quarter: 2013Q2

REPORT INFORMATION
  Report Type: Spontaneous
  Country: HK (occurrence: HK)
  Receive Date: 20130510
  Receipt Date: 20130510
  Transmission Date: 20140414
  Serious: Yes (Life-Threatening)
  Sender: FDA-Public Use
  Company Number: HK-ELI_LILLY_AND_COMPANY-HK201305002818

PATIENT
  Age: 60 Year
  Sex: Male

DRUGS (3)
  1. EFFIENT [Suspect]
     Indication: PERCUTANEOUS CORONARY INTERVENTION
     Dosage: 60 MG, SINGLE
     Route: 048
  2. EFFIENT [Suspect]
     Dosage: 10 MG, QD
  3. ASPIRIN [Concomitant]

REACTIONS (2)
  - Thrombosis in device [Recovering/Resolving]
  - Vomiting [Unknown]
